FAERS Safety Report 5091562-2 (Version None)
Quarter: 2006Q3

REPORT INFORMATION
  Report Type: 
  Country: None (occurrence: None)
  Receive Date: 20060824
  Receipt Date: 20060810
  Transmission Date: 20061208
  Serious: Yes (Other)
  Sender: FDA-Public Use
  Company Number: ABNCR-06-0413

PATIENT
  Sex: Female

DRUGS (1)
  1. ABRAXANE [Suspect]
     Indication: BREAST CANCER METASTATIC
     Dosage: (UNSPECIFIED DOSE EVERY 3 WEEKS), INTRAVENOUS DRIP
     Route: 042
     Dates: start: 20050301

REACTIONS (3)
  - CRANIAL NERVE DISORDER [None]
  - DYSPHAGIA [None]
  - FACIAL PALSY [None]
